FAERS Safety Report 14147719 (Version 15)
Quarter: 2019Q2

REPORT INFORMATION
  Report Type: Spontaneous
  Country: US (occurrence: US)
  Receive Date: 20171031
  Receipt Date: 20190507
  Transmission Date: 20190711
  Serious: No
  Sender: FDA-Public Use
  Company Number: US-ACTELION-A-NJ2017-161600

PATIENT
  Age: 71 Year
  Sex: Female

DRUGS (6)
  1. REMODULIN [Suspect]
     Active Substance: TREPROSTINIL
     Dosage: 19.8 NG/KG, PER MIN
     Route: 042
     Dates: start: 20180930
  2. OPSUMIT [Suspect]
     Active Substance: MACITENTAN
     Indication: PULMONARY ARTERIAL HYPERTENSION
     Dosage: 10 MG, QD
     Route: 048
     Dates: start: 20171009
  3. REMODULIN [Suspect]
     Active Substance: TREPROSTINIL
     Dosage: 27.7 UNK
     Route: 065
  4. REMODULIN [Suspect]
     Active Substance: TREPROSTINIL
     Dosage: 24.7 UNK
     Route: 065
  5. REMODULIN [Suspect]
     Active Substance: TREPROSTINIL
     Indication: PRODUCT USED FOR UNKNOWN INDICATION
     Dosage: 13.9 NG/KG, PER MIN
     Route: 065
  6. REMODULIN [Suspect]
     Active Substance: TREPROSTINIL
     Dosage: 20.8 NG/KG, PER MIN
     Route: 065
     Dates: start: 20180922, end: 20180929

REACTIONS (20)
  - Diarrhoea [Unknown]
  - Fluid retention [Unknown]
  - Oedema peripheral [Not Recovered/Not Resolved]
  - Catheter site pain [Recovering/Resolving]
  - Dizziness [Unknown]
  - Dyspnoea [Unknown]
  - Catheter site infection [Recovering/Resolving]
  - Unevaluable event [Recovering/Resolving]
  - Seasonal allergy [Unknown]
  - Condition aggravated [Unknown]
  - Malaise [Unknown]
  - Device alarm issue [Unknown]
  - Insomnia [Unknown]
  - Tachycardia [Unknown]
  - Headache [Recovered/Resolved]
  - Decreased appetite [Not Recovered/Not Resolved]
  - Product dose omission [Unknown]
  - Nausea [Not Recovered/Not Resolved]
  - Hypotension [Not Recovered/Not Resolved]
  - Asthenia [Unknown]

NARRATIVE: CASE EVENT DATE: 20180206
